FAERS Safety Report 22270230 (Version 1)
Quarter: 2023Q2

REPORT INFORMATION
  Report Type: Spontaneous
  Country: US (occurrence: None)
  Receive Date: 20230428
  Receipt Date: 20230428
  Transmission Date: 20230722
  Serious: Yes (Hospitalization)
  Sender: FDA-Public Use
  Company Number: None

PATIENT
  Age: 65 Year
  Sex: Male
  Weight: 68 kg

DRUGS (1)
  1. OPDIVO [Suspect]
     Active Substance: NIVOLUMAB
     Dates: start: 20220406, end: 20220504

REACTIONS (8)
  - Hyperthyroidism [None]
  - Myocarditis [None]
  - Hepatitis [None]
  - International normalised ratio increased [None]
  - Blood bilirubin increased [None]
  - Aspartate aminotransferase increased [None]
  - Alanine aminotransferase increased [None]
  - Hypersensitivity [None]

NARRATIVE: CASE EVENT DATE: 20220704
